FAERS Safety Report 5400898-4 (Version None)
Quarter: 2007Q3

REPORT INFORMATION
  Report Type: 
  Country: None (occurrence: None)
  Receive Date: 20070725
  Receipt Date: 20070719
  Transmission Date: 20080115
  Serious: Yes (Other)
  Sender: FDA-Public Use
  Company Number: 2007AL002888

PATIENT
  Age: 36 Year
  Sex: Male
  Weight: 97.5234 kg

DRUGS (5)
  1. GABAPENTIN [Suspect]
     Indication: CONVULSION
     Dosage: 800 MG;BID;PO
     Route: 048
     Dates: start: 20000101, end: 20070701
  2. HYDROCODONE BITARTRATE [Concomitant]
  3. XANAX [Concomitant]
  4. ANTIHYPERTENSIVES [Concomitant]
  5. CHOLESTEROL- AND TRIGLYCERIDE REDUCERS [Concomitant]

REACTIONS (2)
  - SUICIDAL IDEATION [None]
  - SUICIDE ATTEMPT [None]
